FAERS Safety Report 4825309-9 (Version None)
Quarter: 2005Q4

REPORT INFORMATION
  Report Type: 
  Country: None (occurrence: None)
  Receive Date: 20051110
  Receipt Date: 20051110
  Transmission Date: 20060501
  Serious: Yes (Other)
  Sender: FDA-Public Use
  Company Number: None

PATIENT
  Age: 7 Year
  Sex: Male

DRUGS (1)
  1. RITALIN [Suspect]
     Indication: ATTENTION DEFICIT/HYPERACTIVITY DISORDER
     Dosage: 10 MG Q NOON 1 AM 6HS PO
     Route: 048
     Dates: start: 20051031

REACTIONS (3)
  - DISTURBANCE IN ATTENTION [None]
  - RESTLESSNESS [None]
  - SCREAMING [None]
